FAERS Safety Report 4820561-8 (Version None)
Quarter: 2005Q4

REPORT INFORMATION
  Report Type: 
  Country: None (occurrence: None)
  Receive Date: 20051102
  Receipt Date: 20051102
  Transmission Date: 20060501
  Serious: Yes (Hospitalization)
  Sender: FDA-Public Use
  Company Number: None

PATIENT
  Age: 81 Year
  Sex: Male
  Weight: 51 kg

DRUGS (15)
  1. AZITHROMYCIN [Suspect]
     Indication: PNEUMONIA
     Dosage: 500 MG DAY IV THEN PO
     Route: 048
     Dates: start: 20050823, end: 20050825
  2. AZITHROMYCIN [Suspect]
     Indication: PNEUMONIA
     Dosage: 500 MG DAY IV THEN PO
     Route: 048
     Dates: start: 20050825, end: 20050826
  3. APAP TAB [Concomitant]
  4. ALB [Concomitant]
  5. ASPIRIN [Concomitant]
  6. CEFPODOXIME [Concomitant]
  7. CLOPIDOGREL BISULFATE [Concomitant]
  8. DOC [Concomitant]
  9. FINASRERIDE [Concomitant]
  10. GUAIFENSIN [Concomitant]
  11. IPRATROPIUM BROMIDE [Concomitant]
  12. ISOSORBIDE [Concomitant]
  13. LOVASTATIN [Concomitant]
  14. RANITIDINE [Concomitant]
  15. RISPERIDONE [Concomitant]

REACTIONS (5)
  - ABNORMAL BEHAVIOUR [None]
  - CONFUSIONAL STATE [None]
  - DISORIENTATION [None]
  - HALLUCINATION, AUDITORY [None]
  - HALLUCINATION, VISUAL [None]
